FAERS Safety Report 5605776-3 (Version None)
Quarter: 2008Q1

REPORT INFORMATION
  Report Type: 
  Country: None (occurrence: None)
  Receive Date: 20080129
  Receipt Date: 20080122
  Transmission Date: 20080703
  Serious: Yes (Death, Hospitalization)
  Sender: FDA-Public Use
  Company Number: US-ROCHE-488878

PATIENT
  Age: 48 Year
  Sex: Male
  Weight: 123.8 kg

DRUGS (2)
  1. PEGASYS [Suspect]
     Route: 058
     Dates: start: 20041201, end: 20050511
  2. COPEGUS [Suspect]
     Dosage: 3 TABLETS IN THE MORNING AND 4 TABLETS IN THE EVENING
     Route: 048
     Dates: start: 20041201, end: 20050511

REACTIONS (9)
  - ASCITES [None]
  - BLADDER DISORDER [None]
  - EPISTAXIS [None]
  - HEPATIC FAILURE [None]
  - INTESTINAL FUNCTIONAL DISORDER [None]
  - PAIN [None]
  - RENAL FAILURE [None]
  - TREMOR [None]
  - YELLOW SKIN [None]
